FAERS Safety Report 17119563 (Version 1)
Quarter: 2019Q4

REPORT INFORMATION
  Report Type: Spontaneous
  Country: BR (occurrence: BR)
  Receive Date: 20191206
  Receipt Date: 20191206
  Transmission Date: 20200122
  Serious: Yes (Other)
  Sender: FDA-Public Use
  Company Number: BR-EMD SERONO-9133274

PATIENT
  Age: 65 Year
  Sex: Male

DRUGS (2)
  1. GLIFAGE [Suspect]
     Active Substance: METFORMIN HYDROCHLORIDE
     Indication: TYPE 2 DIABETES MELLITUS
     Route: 048
  2. GLIFAGE [Suspect]
     Active Substance: METFORMIN HYDROCHLORIDE
     Dosage: NEW FORMAT OF GLIFAGE XR WHICH HAD PROLONGED ACTION
     Route: 048
     Dates: start: 20191201

REACTIONS (1)
  - Dysentery [Not Recovered/Not Resolved]

NARRATIVE: CASE EVENT DATE: 20191201
